FAERS Safety Report 7396913-1 (Version None)
Quarter: 2011Q2

REPORT INFORMATION
  Report Type: 
  Country: None (occurrence: None)
  Receive Date: 20110406
  Receipt Date: 20110328
  Transmission Date: 20111010
  Serious: No
  Sender: FDA-Public Use
  Company Number: US-BAYER-2011-028505

PATIENT
  Sex: Female
  Weight: 58 kg

DRUGS (2)
  1. ULTIMATE MALE FUEL [Concomitant]
  2. ALEVE (CAPLET) [Suspect]
     Dosage: 1 DF, UNK
     Route: 048
     Dates: start: 20110321, end: 20110322

REACTIONS (2)
  - NAUSEA [None]
  - DIZZINESS [None]
